FAERS Safety Report 4786007-3 (Version None)
Quarter: 2005Q3

REPORT INFORMATION
  Report Type: 
  Country: None (occurrence: None)
  Receive Date: 20050930
  Receipt Date: 20050921
  Transmission Date: 20060218
  Serious: Yes (Hospitalization)
  Sender: FDA-Public Use
  Company Number: 2005-09-0784

PATIENT
  Age: 25 Year
  Sex: Female

DRUGS (4)
  1. TEMODAL [Suspect]
     Indication: OLIGODENDROGLIOMA
     Dosage: SEE IMAGE
     Route: 048
     Dates: start: 20040622, end: 20050201
  2. TEMODAL [Suspect]
     Indication: OLIGODENDROGLIOMA
     Dosage: SEE IMAGE
     Route: 048
     Dates: start: 20040906, end: 20050201
  3. TEMODAL [Suspect]
     Indication: OLIGODENDROGLIOMA
     Dosage: SEE IMAGE
     Route: 048
     Dates: start: 20040622
  4. RADIATION THERAPY NO DOSE FORM [Suspect]
     Indication: ASTROCYTOMA
     Dosage: X-RAY THERAPY

REACTIONS (4)
  - DIFFUSE LARGE B-CELL LYMPHOMA [None]
  - LYMPHOPENIA [None]
  - METASTASES TO MENINGES [None]
  - SUPERIOR VENA CAVAL OCCLUSION [None]
